FAERS Safety Report 23322192 (Version 1)
Quarter: 2023Q4

REPORT INFORMATION
  Report Type: Spontaneous
  Country: US (occurrence: US)
  Receive Date: 20231220
  Receipt Date: 20231220
  Transmission Date: 20240109
  Serious: Yes (Hospitalization, Other)
  Sender: FDA-Public Use
  Company Number: US-ABBVIE-5547198

PATIENT

DRUGS (3)
  1. QULIPTA [Suspect]
     Active Substance: ATOGEPANT
     Indication: Product used for unknown indication
     Route: 065
  2. NURTEC ODT [Suspect]
     Active Substance: RIMEGEPANT SULFATE
     Indication: Migraine
     Dosage: FREQUENCY TEXT: 1 DAILY AS NEEDED
     Route: 065
     Dates: start: 20230829
  3. NURTEC ODT [Suspect]
     Active Substance: RIMEGEPANT SULFATE
     Indication: Migraine
     Dosage: FREQUENCY TEXT: 1 DAILY AS NEEDED
     Route: 065
     Dates: start: 20230906, end: 20231030

REACTIONS (8)
  - Deafness [Unknown]
  - Tinnitus [Unknown]
  - Cardiac disorder [Not Recovered/Not Resolved]
  - Drug ineffective [Unknown]
  - Vertigo [Unknown]
  - Hospitalisation [Unknown]
  - Headache [Not Recovered/Not Resolved]
  - Head discomfort [Unknown]
